FAERS Safety Report 24535473 (Version 1)
Quarter: 2024Q4

REPORT INFORMATION
  Report Type: Spontaneous
  Country: US (occurrence: US)
  Receive Date: 20241022
  Receipt Date: 20241022
  Transmission Date: 20250114
  Serious: Yes (Life-Threatening, Hospitalization, Other)
  Sender: BRISTOL-MYERS SQUIBB COMPANY
  Company Number: US-BRISTOL-MYERS SQUIBB COMPANY-2024-165826

PATIENT
  Age: 2 Decade
  Sex: Female

DRUGS (2)
  1. NIVOLUMAB [Suspect]
     Active Substance: NIVOLUMAB
     Indication: Hodgkin^s disease stage II
     Dosage: FOUR CYCLES
  2. BRENTUXIMAB VEDOTIN [Concomitant]
     Active Substance: BRENTUXIMAB VEDOTIN
     Indication: Hodgkin^s disease stage II
     Dosage: FOUR CYCLES

REACTIONS (2)
  - Acute respiratory distress syndrome [Recovering/Resolving]
  - Engraftment syndrome [Recovering/Resolving]
